FAERS Safety Report 24906027 (Version 1)
Quarter: 2025Q1

REPORT INFORMATION
  Report Type: Spontaneous
  Country: CN (occurrence: CN)
  Receive Date: 20250130
  Receipt Date: 20250130
  Transmission Date: 20250409
  Serious: Yes (Hospitalization)
  Sender: ELI LILLY AND COMPANY
  Company Number: CN-ELI_LILLY_AND_COMPANY-CN202501017820

PATIENT
  Age: 88 Year
  Sex: Male
  Weight: 70 kg

DRUGS (4)
  1. HUMALOG [Suspect]
     Active Substance: INSULIN LISPRO
     Indication: Diabetes mellitus
     Dosage: 10 U, DAILY (AT NOON)
     Route: 058
     Dates: start: 2023, end: 20250123
  2. HUMALOG [Suspect]
     Active Substance: INSULIN LISPRO
     Dosage: 7 U, EACH EVENING
     Route: 058
     Dates: start: 2023, end: 20250123
  3. HENAGLIFLOZIN [Concomitant]
     Indication: Type 2 diabetes mellitus
  4. INSULIN ASPART [Concomitant]
     Active Substance: INSULIN ASPART
     Indication: Product used for unknown indication

REACTIONS (6)
  - Blood glucose increased [Unknown]
  - Incorrect dose administered [Unknown]
  - Visual impairment [Unknown]
  - Confusional state [Unknown]
  - Cerebral disorder [Unknown]
  - Fear of eating [Unknown]
